FAERS Safety Report 8850350 (Version 1)
Quarter: 2012Q4

REPORT INFORMATION
  Report Type: 
  Country: IT (occurrence: IT)
  Receive Date: 20121019
  Receipt Date: 20121019
  Transmission Date: 20130627
  Serious: Yes (Hospitalization)
  Sender: FDA-Public Use
  Company Number: IT-MYLANLABS-2012S1021207

PATIENT
  Age: 91 Year
  Sex: Female

DRUGS (5)
  1. CLOPIDOGREL [Suspect]
     Indication: PROPHYLAXIS
     Route: 048
     Dates: start: 20100101, end: 20120625
  2. SIMVASTATIN [Suspect]
     Indication: PRODUCT USED FOR UNKNOWN INDICATION
  3. ENAPREN [Suspect]
     Indication: PRODUCT USED FOR UNKNOWN INDICATION
  4. SELOKEN [Suspect]
     Indication: PRODUCT USED FOR UNKNOWN INDICATION
  5. EUGLUCON [Suspect]
     Indication: PRODUCT USED FOR UNKNOWN INDICATION

REACTIONS (3)
  - Drug interaction [Recovering/Resolving]
  - Periorbital haematoma [Recovering/Resolving]
  - Subdural haematoma [Recovering/Resolving]
